FAERS Safety Report 10151776 (Version 1)
Quarter: 2014Q2

REPORT INFORMATION
  Report Type: Spontaneous
  Country: BB (occurrence: BB)
  Receive Date: 20140505
  Receipt Date: 20140505
  Transmission Date: 20141212
  Serious: Yes (Other)
  Sender: FDA-Public Use
  Company Number: BB-PFIZER INC-2014120704

PATIENT
  Age: 49 Year
  Sex: Female

DRUGS (5)
  1. PANTECTA [Suspect]
     Indication: GASTRITIS EROSIVE
     Dosage: 20 MG, 1X/DAY
     Route: 048
     Dates: start: 20140402
  2. MOTILIUM [Concomitant]
     Dosage: UNK
  3. BUSCOPAN [Concomitant]
     Dosage: UNK
  4. OVOL [Concomitant]
     Dosage: UNK
  5. TECTA [Concomitant]
     Dosage: UNK

REACTIONS (1)
  - Pancreatic carcinoma [Not Recovered/Not Resolved]
